FAERS Safety Report 10381208 (Version 2)
Quarter: 2014Q3

REPORT INFORMATION
  Report Type: Spontaneous
  Country: CH (occurrence: CH)
  Receive Date: 20140813
  Receipt Date: 20140813
  Transmission Date: 20150326
  Serious: Yes (Life-Threatening, Hospitalization)
  Sender: FDA-Public Use
  Company Number: CH-SA-2014SA094022

PATIENT
  Age: 44 Year
  Sex: Male

DRUGS (8)
  1. POTASSIUM [Suspect]
     Active Substance: POTASSIUM
     Indication: PRODUCT USED FOR UNKNOWN INDICATION
     Dosage: SYRUP AND DRAGEES; 100 MMOL
     Route: 065
  2. ACETAZOLAMIDE. [Suspect]
     Active Substance: ACETAZOLAMIDE
     Indication: POLYURIA
     Route: 065
  3. ISOSORBIDE DINITRATE. [Concomitant]
     Active Substance: ISOSORBIDE DINITRATE
     Dates: start: 1986, end: 1986
  4. FUROSEMIDE. [Suspect]
     Active Substance: FUROSEMIDE
     Indication: POLYURIA
     Route: 065
  5. DIGOXIN. [Concomitant]
     Active Substance: DIGOXIN
     Dates: start: 1986, end: 1986
  6. SPIRONOLACTONE. [Suspect]
     Active Substance: SPIRONOLACTONE
     Indication: PRODUCT USED FOR UNKNOWN INDICATION
     Route: 065
  7. ENALAPRIL [Suspect]
     Active Substance: ENALAPRIL
     Indication: CARDIAC FAILURE
     Dosage: HIGH DOSE
     Route: 065
     Dates: start: 1986
  8. METOLAZONE. [Suspect]
     Active Substance: METOLAZONE
     Indication: POLYURIA
     Route: 065

REACTIONS (16)
  - Blood creatine phosphokinase increased [Unknown]
  - Anuria [Unknown]
  - Hypovolaemia [Unknown]
  - Hypotension [Unknown]
  - Bradycardia [Unknown]
  - Loss of consciousness [Unknown]
  - Hyperkalaemia [Recovered/Resolved]
  - Electrocardiogram QRS complex prolonged [Unknown]
  - Polyuria [Unknown]
  - Shock [Unknown]
  - Cardiac arrest [Unknown]
  - Torsade de pointes [Unknown]
  - Ventricular fibrillation [Unknown]
  - Ventricular tachycardia [Unknown]
  - Renal failure [Recovered/Resolved]
  - Blood creatinine increased [Unknown]

NARRATIVE: CASE EVENT DATE: 198611
